FAERS Safety Report 8267157-6 (Version None)
Quarter: 2012Q2

REPORT INFORMATION
  Report Type: 
  Country: None (occurrence: None)
  Receive Date: 20120409
  Receipt Date: 20120328
  Transmission Date: 20120825
  Serious: Yes (Death)
  Sender: FDA-Public Use
  Company Number: US-JNJFOC-20120400308

PATIENT
  Age: 58 Year
  Sex: Male

DRUGS (1)
  1. REMICADE [Suspect]
     Indication: HIDRADENITIS
     Route: 042

REACTIONS (2)
  - BASOSQUAMOUS CARCINOMA [None]
  - DEATH [None]
